FAERS Safety Report 10177995 (Version 1)
Quarter: 2014Q2

REPORT INFORMATION
  Report Type: Spontaneous
  Country: CA (occurrence: CA)
  Receive Date: 20140516
  Receipt Date: 20140516
  Transmission Date: 20141212
  Serious: Yes (Hospitalization)
  Sender: FDA-Public Use
  Company Number: PHHY2014CA057862

PATIENT
  Age: 65 Year
  Sex: Female

DRUGS (10)
  1. CEFAZOLIN [Suspect]
     Indication: ANTIBIOTIC PROPHYLAXIS
     Dosage: 2 G, UNK
  2. METRONIDAZOLE [Suspect]
     Indication: ANTIBIOTIC PROPHYLAXIS
     Dosage: 500 MG, UNK
  3. ROPIVACAINE [Concomitant]
  4. HYDROMORPHONE [Concomitant]
  5. FENTANYL [Concomitant]
  6. PROPOFOL [Concomitant]
  7. LACTATED RINGER [Concomitant]
     Dosage: 2000 ML, UNK
  8. PARACETAMOL [Concomitant]
     Dosage: 650 MG, Q6H
  9. CELECOXIB [Concomitant]
     Dosage: 200 MG, Q12H
  10. ENOXAPARIN [Concomitant]
     Indication: THROMBOSIS PROPHYLAXIS
     Dosage: 40 MG, QD
     Route: 058

REACTIONS (9)
  - Spinal epidural haematoma [Recovering/Resolving]
  - Paraplegia [Recovering/Resolving]
  - Back pain [Recovering/Resolving]
  - Motor dysfunction [Recovering/Resolving]
  - Coagulopathy [Recovering/Resolving]
  - International normalised ratio increased [Recovering/Resolving]
  - Blood albumin decreased [Recovering/Resolving]
  - Vitamin K deficiency [Recovering/Resolving]
  - Sensory disturbance [Recovering/Resolving]
